FAERS Safety Report 4561607-4 (Version None)
Quarter: 2005Q1

REPORT INFORMATION
  Report Type: 
  Country: None (occurrence: None)
  Receive Date: 20050126
  Receipt Date: 20050118
  Transmission Date: 20050727
  Serious: Yes (Other)
  Sender: FDA-Public Use
  Company Number: US-GLAXOSMITHKLINE-A0541141A

PATIENT
  Age: 24 Year
  Sex: Female

DRUGS (2)
  1. WELLBUTRIN [Suspect]
     Indication: DEPRESSION
     Dosage: 300MG PER DAY
     Route: 048
     Dates: start: 20041230, end: 20050117
  2. MICRONOR [Concomitant]

REACTIONS (7)
  - ERYTHEMA [None]
  - MUSCULOSKELETAL STIFFNESS [None]
  - OEDEMA PERIPHERAL [None]
  - ORBITAL OEDEMA [None]
  - RASH [None]
  - SERUM SICKNESS [None]
  - URTICARIA [None]
